FAERS Safety Report 19989542 (Version 1)
Quarter: 2021Q4

REPORT INFORMATION
  Report Type: Spontaneous
  Country: FR (occurrence: FR)
  Receive Date: 20211025
  Receipt Date: 20211025
  Transmission Date: 20220304
  Serious: Yes (Hospitalization)
  Sender: FDA-Public Use
  Company Number: FR-ABBVIE-21K-056-4131705-00

PATIENT
  Age: 61 Year
  Sex: Male
  Weight: 72 kg

DRUGS (3)
  1. VALPROATE SODIUM [Suspect]
     Active Substance: VALPROATE SODIUM
     Indication: Epilepsy
     Dosage: QD
     Route: 048
     Dates: start: 201008
  2. DOXYCYCLINE [Suspect]
     Active Substance: DOXYCYCLINE
     Indication: Pemphigoid
     Route: 048
     Dates: start: 20181109, end: 20181210
  3. NICOTINAMIDE [Suspect]
     Active Substance: NIACINAMIDE
     Indication: Pemphigoid
     Dosage: QD
     Route: 048
     Dates: start: 20181109, end: 20181211

REACTIONS (3)
  - Psychomotor skills impaired [Recovered/Resolved]
  - Drug interaction [Recovering/Resolving]
  - Malaise [Recovered/Resolved]

NARRATIVE: CASE EVENT DATE: 20181112
